FAERS Safety Report 13524068 (Version 1)
Quarter: 2017Q2

REPORT INFORMATION
  Report Type: Spontaneous
  Country: US (occurrence: US)
  Receive Date: 20170508
  Receipt Date: 20170508
  Transmission Date: 20170830
  Serious: No
  Sender: FDA-Public Use
  Company Number: US-VIFOR (INTERNATIONAL) INC.-VIT-2017-00900

PATIENT
  Sex: Male

DRUGS (13)
  1. LIPITOR [Concomitant]
     Active Substance: ATORVASTATIN CALCIUM
  2. ASA [Concomitant]
     Active Substance: ASPIRIN
  3. ADVIAR [Concomitant]
  4. SAW PALMETTO [Concomitant]
     Active Substance: HERBALS\SAW PALMETTO
  5. HUMALOG [Concomitant]
     Active Substance: INSULIN LISPRO
  6. FISH OIL [Concomitant]
     Active Substance: FISH OIL
  7. KEPPRA [Concomitant]
     Active Substance: LEVETIRACETAM
  8. NIFEDIPINE. [Concomitant]
     Active Substance: NIFEDIPINE
  9. CARDURA [Concomitant]
     Active Substance: DOXAZOSIN MESYLATE
  10. VITAMINS NOS [Concomitant]
     Active Substance: VITAMINS
  11. HYDROCHLOROTHIAZIDE/LOSARTAN [Concomitant]
  12. VELTASSA [Suspect]
     Active Substance: PATIROMER
     Indication: HYPERKALAEMIA
     Dates: start: 20161209
  13. LEVEMIR [Concomitant]
     Active Substance: INSULIN DETEMIR

REACTIONS (3)
  - Product taste abnormal [Unknown]
  - Product physical consistency issue [Unknown]
  - Product solubility abnormal [Unknown]

NARRATIVE: CASE EVENT DATE: 2017
